FAERS Safety Report 16550975 (Version 1)
Quarter: 2019Q3

REPORT INFORMATION
  Report Type: Spontaneous
  Country: US (occurrence: US)
  Receive Date: 20190709
  Receipt Date: 20190709
  Transmission Date: 20191004
  Serious: No
  Sender: FDA-Public Use
  Company Number: None

PATIENT
  Age: 57 Year
  Sex: Female

DRUGS (1)
  1. AIMOVIG [Suspect]
     Active Substance: ERENUMAB-AOOE
     Indication: MIGRAINE
     Dosage: ?          OTHER FREQUENCY:ONCE;?
     Route: 058
     Dates: start: 20190314, end: 20190314

REACTIONS (6)
  - Fear [None]
  - Feeling abnormal [None]
  - Panic disorder [None]
  - Injection site pain [None]
  - Headache [None]
  - Head discomfort [None]

NARRATIVE: CASE EVENT DATE: 20190314
